FAERS Safety Report 7391808-1 (Version None)
Quarter: 2011Q2

REPORT INFORMATION
  Report Type: 
  Country: None (occurrence: None)
  Receive Date: 20110404
  Receipt Date: 20110322
  Transmission Date: 20111010
  Serious: Yes (Hospitalization)
  Sender: FDA-Public Use
  Company Number: RU-ROCHE-767157

PATIENT
  Sex: Female
  Weight: 100 kg

DRUGS (9)
  1. METHOTREXATE [Suspect]
     Indication: RHEUMATOID ARTHRITIS
     Route: 065
     Dates: start: 20060126
  2. ACID FOLIC [Concomitant]
     Dates: start: 20060128
  3. TOCILIZUMAB [Suspect]
     Dosage: DATE OF LAST DOSE PRIOR TO SAE: 24 JAN 2011.
     Route: 042
     Dates: start: 20061006
  4. NIMULIDE [Concomitant]
     Dates: start: 20060101
  5. AMLODIPINE [Concomitant]
     Dates: start: 20051201
  6. TOCILIZUMAB [Suspect]
     Route: 065
  7. ACID FOLIC [Concomitant]
     Dates: start: 20060105
  8. TOCILIZUMAB [Suspect]
     Indication: RHEUMATOID ARTHRITIS
     Dosage: LAST DOSE PRIOR TO SAE: 07 OCTOBER 2010.
     Route: 042
     Dates: start: 20060427
  9. NIMULIDE [Concomitant]
     Dates: start: 20050511

REACTIONS (1)
  - ASTHMA [None]
